FAERS Safety Report 9030845 (Version 1)
Quarter: 2013Q1

REPORT INFORMATION
  Report Type: Report from Study
  Country: GB (occurrence: GB)
  Receive Date: 20130123
  Receipt Date: 20130123
  Transmission Date: 20140127
  Serious: Yes (Other)
  Sender: FDA-Public Use
  Company Number: GB-ROCHE-1179999

PATIENT
  Age: 75 Year
  Sex: Female

DRUGS (3)
  1. RITUXIMAB [Suspect]
     Indication: RHEUMATOID ARTHRITIS
     Dosage: 30/NOV/2010, LAST DOSE PRIOR TO SAE
     Route: 065
     Dates: start: 20101117, end: 20101130
  2. TOCILIZUMAB [Suspect]
     Indication: RHEUMATOID ARTHRITIS
     Dosage: 23/NOV/2011, LAST DOSE PRIOR TO SAE
     Route: 065
     Dates: start: 20110720, end: 20111123
  3. METHOTREXATE [Concomitant]
     Route: 065
     Dates: start: 200307

REACTIONS (1)
  - Malignant melanoma [Recovered/Resolved]
